FAERS Safety Report 11728826 (Version 1)
Quarter: 2015Q4

REPORT INFORMATION
  Report Type: Spontaneous
  Country: US (occurrence: US)
  Receive Date: 20151110
  Receipt Date: 20151110
  Transmission Date: 20160304
  Serious: No
  Sender: FDA-Public Use
  Company Number: US-ELI_LILLY_AND_COMPANY-US201112003058

PATIENT
  Sex: Female

DRUGS (1)
  1. FORTEO [Suspect]
     Active Substance: TERIPARATIDE
     Dosage: UNK, QD

REACTIONS (10)
  - Chest discomfort [Unknown]
  - Insomnia [Unknown]
  - Oropharyngeal pain [Unknown]
  - Chest pain [Unknown]
  - Palpitations [Unknown]
  - Headache [Recovered/Resolved]
  - Rhinorrhoea [Unknown]
  - Mouth swelling [Unknown]
  - Injection site erythema [Unknown]
  - Intentional product misuse [Unknown]
